FAERS Safety Report 5120243-1 (Version None)
Quarter: 2006Q3

REPORT INFORMATION
  Report Type: 
  Country: None (occurrence: None)
  Receive Date: 20060928
  Receipt Date: 20060915
  Transmission Date: 20061208
  Serious: Yes (Other)
  Sender: FDA-Public Use
  Company Number: 2006113111

PATIENT

DRUGS (1)
  1. LYRICA [Suspect]
     Dosage: 50 MG, ORAL
     Route: 048

REACTIONS (3)
  - CONDITION AGGRAVATED [None]
  - OEDEMA [None]
  - RENAL FAILURE [None]
